FAERS Safety Report 9734998 (Version 2)
Quarter: 2014Q1

REPORT INFORMATION
  Report Type: Spontaneous
  Country: CA (occurrence: CA)
  Receive Date: 20131206
  Receipt Date: 20140214
  Transmission Date: 20141002
  Serious: Yes (Hospitalization, Other)
  Sender: FDA-Public Use
  Company Number: CA-AMGEN-CANSP2013084778

PATIENT
  Age: 65 Year
  Sex: Female

DRUGS (4)
  1. ENBREL [Suspect]
     Indication: RHEUMATOID ARTHRITIS
     Dosage: 50 MG, UNK
     Route: 065
     Dates: start: 201301, end: 201311
  2. PLAQUENIL                          /00072602/ [Concomitant]
     Dosage: UNK
  3. LEFLUNOMIDE [Concomitant]
     Dosage: UNK
  4. SYNTHROID [Concomitant]
     Dosage: UNK

REACTIONS (1)
  - Renal cancer [Not Recovered/Not Resolved]
